APPROVED DRUG PRODUCT: NEOPASALATE
Active Ingredient: AMINOSALICYLATE SODIUM; AMINOSALICYLIC ACID
Strength: 846MG;112MG
Dosage Form/Route: TABLET;ORAL
Application: A080059 | Product #002
Applicant: MEDPOINTE PHARMACEUTICALS MEDPOINTE HEALTHCARE INC
Approved: Approved Prior to Jan 1, 1982 | RLD: No | RS: No | Type: DISCN